FAERS Safety Report 24820532 (Version 1)
Quarter: 2025Q1

REPORT INFORMATION
  Report Type: Spontaneous
  Country: GB (occurrence: GB)
  Receive Date: 20250108
  Receipt Date: 20250108
  Transmission Date: 20250408
  Serious: Yes (Death)
  Sender: PFIZER
  Company Number: GB-PFIZER INC-PV202500002534

PATIENT
  Age: 89 Year
  Sex: Male

DRUGS (1)
  1. VYNDAQEL [Suspect]
     Active Substance: TAFAMIDIS MEGLUMINE
     Indication: Cardiac amyloidosis
     Dates: start: 202408

REACTIONS (1)
  - Death [Fatal]

NARRATIVE: CASE EVENT DATE: 20250106
